FAERS Safety Report 7147912-6 (Version None)
Quarter: 2010Q4

REPORT INFORMATION
  Report Type: 
  Country: None (occurrence: None)
  Receive Date: 20101209
  Receipt Date: 20101201
  Transmission Date: 20110411
  Serious: Yes (Other)
  Sender: FDA-Public Use
  Company Number: JP-JNJFOC-20101202292

PATIENT
  Age: 7 Year

DRUGS (1)
  1. CONCERTA [Suspect]
     Indication: ILL-DEFINED DISORDER
     Route: 048

REACTIONS (4)
  - DECREASED APPETITE [None]
  - DYSPHAGIA [None]
  - EPILEPSY [None]
  - WRONG TECHNIQUE IN DRUG USAGE PROCESS [None]
